FAERS Safety Report 6372373-4 (Version None)
Quarter: 2009Q3

REPORT INFORMATION
  Report Type: 
  Country: None (occurrence: None)
  Receive Date: 20090924
  Receipt Date: 20081017
  Transmission Date: 20100115
  Serious: No
  Sender: FDA-Public Use
  Company Number: US-ASTRAZENECA-2008UW23026

PATIENT
  Sex: Female

DRUGS (7)
  1. SEROQUEL [Suspect]
     Dosage: 200 TO 300 MG
     Route: 048
  2. PENICILIN [Concomitant]
  3. KEFLEX [Concomitant]
  4. SULFA [Concomitant]
  5. VANCOMYCIN [Concomitant]
  6. MORPHINE [Concomitant]
  7. CEPHALEXIN [Concomitant]

REACTIONS (1)
  - SPASMODIC DYSPHONIA [None]
